FAERS Safety Report 10618623 (Version 1)
Quarter: 2014Q4

REPORT INFORMATION
  Report Type: Spontaneous
  Country: DE (occurrence: DE)
  Receive Date: 20141202
  Receipt Date: 20141202
  Transmission Date: 20150529
  Serious: Yes (Congenital Anomaly)
  Sender: FDA-Public Use
  Company Number: DE-BAYER-2014-172903

PATIENT

DRUGS (3)
  1. RUPTON [Concomitant]
     Dosage: UNK
     Route: 064
  2. AVALOX [Suspect]
     Active Substance: MOXIFLOXACIN HYDROCHLORIDE
     Route: 064
  3. NASONEX [Concomitant]
     Active Substance: MOMETASONE FUROATE
     Dosage: UNK
     Route: 064

REACTIONS (4)
  - Persistent left superior vena cava [None]
  - Aortic stenosis [None]
  - Foetal exposure timing unspecified [None]
  - Cardiac disorder [None]
